FAERS Safety Report 9412558 (Version 2)
Quarter: 2013Q3

REPORT INFORMATION
  Report Type: Spontaneous
  Country: JP (occurrence: JP)
  Receive Date: 20130722
  Receipt Date: 20130813
  Transmission Date: 20140515
  Serious: Yes (Life-Threatening)
  Sender: FDA-Public Use
  Company Number: JP-B.I. PHARMACEUTICALS,INC./RIDGEFIELD-2013-BI-21246NB

PATIENT
  Age: 57 Year
  Sex: Female
  Weight: 87 kg

DRUGS (4)
  1. PRAZAXA [Suspect]
     Indication: CEREBROVASCULAR ACCIDENT PROPHYLAXIS
     Dosage: 300 MG
     Route: 048
     Dates: start: 20130227, end: 20130530
  2. ARTIST [Concomitant]
     Indication: CARDIAC FAILURE CHRONIC
     Dosage: 20 MG
     Route: 048
     Dates: start: 20130227
  3. LIVALO [Concomitant]
     Indication: BLOOD CHOLESTEROL DECREASED
     Dosage: 2 MG
     Route: 048
     Dates: start: 20130503
  4. AMIODARONE HYDROCHLORIDE [Concomitant]
     Indication: ARRHYTHMIA
     Dosage: 400 MG
     Route: 048
     Dates: start: 20130411

REACTIONS (4)
  - Cardiac ventricular thrombosis [Recovered/Resolved]
  - Cerebral infarction [Recovered/Resolved with Sequelae]
  - Peripheral artery thrombosis [Not Recovered/Not Resolved]
  - Renal infarct [Recovered/Resolved with Sequelae]
